FAERS Safety Report 8395749 (Version 3)
Quarter: 2013Q1

REPORT INFORMATION
  Report Type: Spontaneous
  Country: TR (occurrence: None)
  Receive Date: 20120126
  Receipt Date: 20121031
  Transmission Date: 20140127
  Serious: Yes (Other)
  Sender: FDA-Public Use
  Company Number: TR-024964

PATIENT
  Age: 9 Year
  Sex: Female

DRUGS (2)
  1. BUSULPHAN [Suspect]
     Indication: MYELODYSPLASTIC SYNDROME
  2. CYCLOPHOSPHAMIDE [Suspect]
     Indication: MYELODYSPLASTIC SYNDROME

REACTIONS (2)
  - Chronic graft versus host disease [None]
  - Primary adrenal insufficiency [None]
